FAERS Safety Report 20016264 (Version 1)
Quarter: 2021Q4

REPORT INFORMATION
  Report Type: Spontaneous
  Country: US (occurrence: None)
  Receive Date: 20211103
  Receipt Date: 20211103
  Transmission Date: 20220303
  Serious: Yes (Other)
  Sender: FDA-Public Use
  Company Number: None

PATIENT
  Age: 35 Year
  Sex: Female
  Weight: 78.5 kg

DRUGS (1)
  1. DOXORUBICIN [Suspect]
     Active Substance: DOXORUBICIN
     Indication: Hodgkin^s disease
     Dosage: OTHER FREQUENCY : EVERY 2 WEEKS;?
     Route: 042

REACTIONS (2)
  - Device delivery system issue [None]
  - Vascular access complication [None]

NARRATIVE: CASE EVENT DATE: 20210902
